FAERS Safety Report 5590691-4 (Version None)
Quarter: 2008Q1

REPORT INFORMATION
  Report Type: 
  Country: None (occurrence: None)
  Receive Date: 20080114
  Receipt Date: 20080111
  Transmission Date: 20080703
  Serious: Yes (Other)
  Sender: FDA-Public Use
  Company Number: SE-GENENTECH-246743

PATIENT
  Sex: Female

DRUGS (1)
  1. HERCEPTIN [Suspect]
     Indication: BREAST CANCER
     Dosage: 150 MG, UNKNOWN
     Route: 042
     Dates: start: 20060831, end: 20070619

REACTIONS (2)
  - BREAST NEOPLASM [None]
  - LUNG INFILTRATION [None]
